FAERS Safety Report 24063518 (Version 1)
Quarter: 2024Q3

REPORT INFORMATION
  Report Type: Spontaneous
  Country: CN (occurrence: CN)
  Receive Date: 20240709
  Receipt Date: 20240709
  Transmission Date: 20241016
  Serious: Yes (Hospitalization, Other)
  Sender: IPSEN
  Company Number: CN-IPSEN Group, Research and Development-2024-07857

PATIENT
  Age: 34 Year
  Sex: Female

DRUGS (1)
  1. DYSPORT [Suspect]
     Active Substance: ABOBOTULINUMTOXINA
     Indication: Product used for unknown indication
     Route: 065
     Dates: start: 20230321, end: 20230321

REACTIONS (4)
  - Loss of consciousness [Recovered/Resolved]
  - Neuromuscular toxicity [Recovered/Resolved]
  - Brain oedema [Recovered/Resolved]
  - Off label use [Unknown]

NARRATIVE: CASE EVENT DATE: 20230321
